FAERS Safety Report 14444273 (Version 1)
Quarter: 2018Q1

REPORT INFORMATION
  Report Type: Spontaneous
  Country: IT (occurrence: IT)
  Receive Date: 20180125
  Receipt Date: 20180125
  Transmission Date: 20180509
  Serious: Yes (Hospitalization, Other)
  Sender: FDA-Public Use
  Company Number: IT-VISTAPHARM, INC.-VER201801-000199

PATIENT
  Age: 28 Year
  Sex: Female

DRUGS (2)
  1. HYDROCODONE AND ACETAMINOPHEN [Suspect]
     Active Substance: ACETAMINOPHEN\HYDROCODONE
     Indication: PROCEDURAL PAIN
  2. CODEINE [Suspect]
     Active Substance: CODEINE
     Indication: PROCEDURAL PAIN

REACTIONS (1)
  - Pancreatitis acute [Recovered/Resolved]
